FAERS Safety Report 10149482 (Version 1)
Quarter: 2014Q2

REPORT INFORMATION
  Report Type: Spontaneous
  Country: US (occurrence: None)
  Receive Date: 20140501
  Receipt Date: 20140501
  Transmission Date: 20141212
  Serious: Yes (Other)
  Sender: FDA-Public Use
  Company Number: None

PATIENT
  Sex: Female
  Weight: 115.67 kg

DRUGS (3)
  1. REMICADE [Suspect]
  2. REMICADE INFUSION [Concomitant]
  3. PREDNISONE [Concomitant]

REACTIONS (2)
  - Blister [None]
  - Erythema multiforme [None]
